FAERS Safety Report 9139890 (Version 1)
Quarter: 2013Q1

REPORT INFORMATION
  Report Type: Spontaneous
  Country: BE (occurrence: BE)
  Receive Date: 20130305
  Receipt Date: 20130305
  Transmission Date: 20140127
  Serious: Yes (Other)
  Sender: FDA-Public Use
  Company Number: BE-PFIZER INC-2013071789

PATIENT
  Age: 60 Year
  Sex: Female

DRUGS (1)
  1. XANAX [Suspect]
     Dosage: 0.5 MG, UNK
     Route: 048

REACTIONS (3)
  - Visual impairment [Unknown]
  - Intraocular pressure increased [Unknown]
  - Product quality issue [Unknown]
